FAERS Safety Report 15232215 (Version 1)
Quarter: 2018Q3

REPORT INFORMATION
  Report Type: Spontaneous
  Country: US (occurrence: US)
  Receive Date: 20180802
  Receipt Date: 20180802
  Transmission Date: 20181010
  Serious: No
  Sender: FDA-Public Use
  Company Number: US-PFIZER INC-2018309399

PATIENT
  Age: 49 Year
  Sex: Male

DRUGS (1)
  1. GENOTROPIN MQ [Suspect]
     Active Substance: SOMATROPIN
     Dosage: 0.2 MG, DAILY
     Dates: start: 2010

REACTIONS (6)
  - Laboratory test abnormal [Unknown]
  - Cognitive disorder [Unknown]
  - Haemoglobin increased [Unknown]
  - Haematocrit increased [Unknown]
  - Fatigue [Unknown]
  - Glomerular filtration rate increased [Unknown]
